FAERS Safety Report 26139335 (Version 2)
Quarter: 2025Q4

REPORT INFORMATION
  Report Type: Spontaneous
  Country: EU (occurrence: EU)
  Receive Date: 20251210
  Receipt Date: 20251221
  Transmission Date: 20260117
  Serious: Yes (Hospitalization)
  Sender: CSL BEHRING
  Company Number: None

PATIENT
  Age: 23 Year
  Sex: Male

DRUGS (1)
  1. PRIVIGEN [Suspect]
     Active Substance: HUMAN IMMUNOGLOBULIN G
     Indication: Secondary immunodeficiency
     Dosage: 0.8 G/KG
     Route: 042
     Dates: start: 20251104, end: 20251104

REACTIONS (5)
  - Infusion related reaction [Recovered/Resolved]
  - Flushing [Recovered/Resolved]
  - Vomiting [Recovered/Resolved]
  - Dyspepsia [Recovered/Resolved]
  - Erythema [Recovered/Resolved]

NARRATIVE: CASE EVENT DATE: 20251104
